FAERS Safety Report 6040641-1 (Version None)
Quarter: 2009Q1

REPORT INFORMATION
  Report Type: 
  Country: None (occurrence: None)
  Receive Date: 20090116
  Receipt Date: 20080424
  Transmission Date: 20090719
  Serious: Yes (Hospitalization)
  Sender: FDA-Public Use
  Company Number: US-BRISTOL-MYERS SQUIBB COMPANY-14163992

PATIENT
  Age: 21 Year
  Sex: Female

DRUGS (2)
  1. ABILIFY [Suspect]
     Dates: start: 20080410
  2. RISPERDAL [Concomitant]
     Dosage: INCREASED BY 1MG IN THE AM QD.
     Dates: end: 20080409

REACTIONS (3)
  - CATATONIA [None]
  - DYSTONIA [None]
  - HYPERTENSION [None]
